FAERS Safety Report 5372251-3 (Version None)
Quarter: 2007Q2

REPORT INFORMATION
  Report Type: 
  Country: None (occurrence: None)
  Receive Date: 20070615
  Receipt Date: 20070130
  Transmission Date: 20071010
  Serious: Yes (Other)
  Sender: FDA-Public Use
  Company Number: 200619719US

PATIENT
  Age: 58 Year
  Sex: Male
  Weight: 91 kg

DRUGS (12)
  1. LANTUS [Suspect]
     Indication: DIABETES MELLITUS NON-INSULIN-DEPENDENT
     Dosage: 65 U QAM
  2. LANTUS [Suspect]
     Indication: DIABETES MELLITUS NON-INSULIN-DEPENDENT
  3. METFORMIN HYDROCHLORIDE [Concomitant]
  4. AVANDIA [Concomitant]
  5. ISOSONONER [Concomitant]
  6. LOVASTATIN [Concomitant]
  7. ATENOLOL [Concomitant]
  8. PLAVIX [Concomitant]
  9. ENALAPRIL MALEATE [Concomitant]
  10. IPRATROPIUM BROMIDE, SALBUTAMOL SULFATE    (DUONEB) [Concomitant]
  11. MEVACOR [Concomitant]
  12. ISOSORBIDE MONONITRATE [Concomitant]

REACTIONS (4)
  - BLOOD GLUCOSE INCREASED [None]
  - DRUG INEFFECTIVE [None]
  - HYPERHIDROSIS [None]
  - HYPOGLYCAEMIA [None]
